FAERS Safety Report 17967923 (Version 7)
Quarter: 2021Q1

REPORT INFORMATION
  Report Type: Spontaneous
  Country: US (occurrence: US)
  Receive Date: 20200701
  Receipt Date: 20210219
  Transmission Date: 20210419
  Serious: No
  Sender: FDA-Public Use
  Company Number: US-GLAXOSMITHKLINE-US2020AMR112933

PATIENT
  Sex: Female

DRUGS (9)
  1. GABAPENTIN. [Concomitant]
     Active Substance: GABAPENTIN
     Indication: NEUROPATHY PERIPHERAL
     Dosage: UNK
  2. ZEJULA [Suspect]
     Active Substance: NIRAPARIB
     Indication: OVARIAN CANCER
     Dosage: 300 MG, QD
     Route: 048
     Dates: start: 20200615
  3. ZEJULA [Suspect]
     Active Substance: NIRAPARIB
     Dosage: 100 MG, QD
  4. ZEJULA [Suspect]
     Active Substance: NIRAPARIB
     Dosage: 100 MG, QD
  5. AVASTIN [Suspect]
     Active Substance: BEVACIZUMAB
     Indication: HYPERTENSION
     Dosage: UNK
  6. ZEJULA [Suspect]
     Active Substance: NIRAPARIB
     Dosage: 100 MG, QD
  7. ZEJULA [Suspect]
     Active Substance: NIRAPARIB
     Dosage: 100 MG, QD
     Route: 048
  8. ZEJULA [Suspect]
     Active Substance: NIRAPARIB
     Dosage: 100 MG, QD
  9. LISINOPRIL. [Concomitant]
     Active Substance: LISINOPRIL
     Indication: HYPERTENSION
     Dosage: UNK

REACTIONS (11)
  - Abdominal pain upper [Recovered/Resolved]
  - Blood pressure increased [Recovering/Resolving]
  - Lymphoedema [Not Recovered/Not Resolved]
  - Nausea [Unknown]
  - Peripheral swelling [Not Recovered/Not Resolved]
  - Feeling abnormal [Unknown]
  - Blood potassium increased [Unknown]
  - Vomiting [Unknown]
  - Abdominal discomfort [Recovered/Resolved]
  - Osteoarthritis [Unknown]
  - Muscle spasms [Recovered/Resolved]
